FAERS Safety Report 4603783-0 (Version None)
Quarter: 2005Q1

REPORT INFORMATION
  Report Type: 
  Country: None (occurrence: None)
  Receive Date: 20050310
  Receipt Date: 20050304
  Transmission Date: 20050727
  Serious: Yes (Life-Threatening, Hospitalization, Disabling, Other)
  Sender: FDA-Public Use
  Company Number: PHEH2005US02795

PATIENT
  Sex: Female

DRUGS (3)
  1. LOTENSIN [Suspect]
     Indication: HYPERTENSION
     Dates: start: 19960101, end: 20010601
  2. BAYCOL [Suspect]
     Dates: start: 20001101, end: 20010401
  3. PRAVACHOL [Suspect]

REACTIONS (9)
  - ANGIOGRAM [None]
  - ASTHENIA [None]
  - GROIN PAIN [None]
  - IRRITABLE BOWEL SYNDROME [None]
  - MUSCLE SPASMS [None]
  - MYALGIA [None]
  - RECTAL HAEMORRHAGE [None]
  - STOMACH DISCOMFORT [None]
  - SURGERY [None]
